FAERS Safety Report 11242990 (Version 2)
Quarter: 2015Q3

REPORT INFORMATION
  Report Type: Spontaneous
  Country: US (occurrence: None)
  Receive Date: 20150702
  Receipt Date: 20150928
  Transmission Date: 20151125
  Serious: Yes (Hospitalization, Other)
  Sender: FDA-Public Use
  Company Number: 2015US0193

PATIENT
  Age: 4 Year
  Sex: Male
  Weight: 19.4 kg

DRUGS (4)
  1. KINERET [Suspect]
     Active Substance: ANAKINRA
     Indication: JUVENILE IDIOPATHIC ARTHRITIS
     Route: 058
     Dates: start: 20130315
  2. MULTIVITAMIN (FERROUS SULFATE W/VITAMINS NOS) TABLET) (FERROUS SULFATE, VITAMINS NOS) [Concomitant]
  3. PREDNISONE. [Concomitant]
     Active Substance: PREDNISONE
  4. SOLU-MEDROL (METHYPREDNISOLONE SODIUM SUCCINATE) [Concomitant]

REACTIONS (6)
  - Juvenile idiopathic arthritis [None]
  - Cytopenia [None]
  - Histiocytosis haematophagic [None]
  - Epstein-Barr virus infection [None]
  - Hepatic enzyme increased [None]
  - Pyrexia [None]

NARRATIVE: CASE EVENT DATE: 20150121
